FAERS Safety Report 20960460 (Version 1)
Quarter: 2022Q2

REPORT INFORMATION
  Report Type: Spontaneous
  Country: US (occurrence: US)
  Receive Date: 20220615
  Receipt Date: 20220615
  Transmission Date: 20220720
  Serious: No
  Sender: FDA-Public Use
  Company Number: US-CELGENE-USA-20210403954

PATIENT
  Age: 76 Year
  Sex: Male

DRUGS (7)
  1. POMALYST [Suspect]
     Active Substance: POMALIDOMIDE
     Indication: Plasma cell myeloma
     Dosage: 1 MILLIGRAM
     Route: 048
     Dates: start: 202001
  2. POMALYST [Suspect]
     Active Substance: POMALIDOMIDE
     Dosage: 5-1 MILLIGRAM
     Route: 048
     Dates: start: 202007
  3. POMALYST [Suspect]
     Active Substance: POMALIDOMIDE
     Dosage: 2MILLIGRAM
     Route: 048
     Dates: start: 202009
  4. POMALYST [Suspect]
     Active Substance: POMALIDOMIDE
     Dosage: 2 MILLIGRAM
     Route: 048
     Dates: start: 20201127
  5. POMALYST [Suspect]
     Active Substance: POMALIDOMIDE
     Dosage: 3MILLIGRAM
     Route: 048
     Dates: start: 202012
  6. POMALYST [Suspect]
     Active Substance: POMALIDOMIDE
     Route: 048
     Dates: start: 201904
  7. POMALYST [Suspect]
     Active Substance: POMALIDOMIDE
     Route: 048
     Dates: start: 20200116

REACTIONS (4)
  - Weight increased [Unknown]
  - Peripheral swelling [Unknown]
  - Blood glucose increased [Unknown]
  - Headache [Recovered/Resolved]

NARRATIVE: CASE EVENT DATE: 20210411
